FAERS Safety Report 10031580 (Version 1)
Quarter: 2014Q1

REPORT INFORMATION
  Report Type: Spontaneous
  Country: IT (occurrence: IT)
  Receive Date: 20140324
  Receipt Date: 20140324
  Transmission Date: 20141002
  Serious: Yes (Hospitalization)
  Sender: FDA-Public Use
  Company Number: IT-ABBVIE-14P-083-1215700-00

PATIENT
  Sex: Female

DRUGS (8)
  1. DEPAKIN [Suspect]
     Indication: PRODUCT USED FOR UNKNOWN INDICATION
     Dosage: TIME TO ONSET: FEW HOURS
     Route: 065
     Dates: start: 20130304, end: 20130304
  2. ENALAPRIL MALEATE [Suspect]
     Indication: PRODUCT USED FOR UNKNOWN INDICATION
     Dosage: TIME TO ONSET: FEW HOURS
     Route: 048
     Dates: start: 20130304, end: 20130304
  3. CITALOPRAM HYDROCHLORIDE [Suspect]
     Indication: PRODUCT USED FOR UNKNOWN INDICATION
     Dosage: TIME TO ONSET: FEW HOURS
     Route: 065
     Dates: start: 20130304, end: 20130304
  4. TORA-DOL [Suspect]
     Indication: PRODUCT USED FOR UNKNOWN INDICATION
     Route: 048
     Dates: start: 20130304, end: 20130304
  5. CONTRAMAL [Suspect]
     Indication: PRODUCT USED FOR UNKNOWN INDICATION
     Route: 065
     Dates: start: 20130304, end: 20130304
  6. PARACODINA [Suspect]
     Indication: PRODUCT USED FOR UNKNOWN INDICATION
     Dosage: (ALTHAEA OFFICINALIS/BENZOID ACID/DIHYDROCODEINE BITARTRATE/GRINDELIA CAMPORUM EXTRACT)
     Route: 048
     Dates: start: 20130304, end: 20130304
  7. TRITTICO [Suspect]
     Indication: PRODUCT USED FOR UNKNOWN INDICATION
     Route: 048
     Dates: start: 20130304, end: 20130304
  8. TOLEP [Suspect]
     Indication: PRODUCT USED FOR UNKNOWN INDICATION
     Route: 048
     Dates: start: 20130304, end: 20130304

REACTIONS (1)
  - Coma [Recovered/Resolved]
